FAERS Safety Report 6399197-6 (Version None)
Quarter: 2009Q4

REPORT INFORMATION
  Report Type: 
  Country: None (occurrence: None)
  Receive Date: 20091008
  Receipt Date: 20090923
  Transmission Date: 20100525
  Serious: Yes (Hospitalization)
  Sender: FDA-Public Use
  Company Number: 2009002910

PATIENT
  Age: 63 Year
  Sex: Female

DRUGS (4)
  1. ERLOTINIB HYDROCHLORIDE [Suspect]
     Indication: COLORECTAL CANCER
     Dosage: 100 MG, QD, ORAL
     Route: 048
     Dates: start: 20090707, end: 20090904
  2. CETUXIMAB (CETUXIMAB) [Suspect]
     Indication: COLORECTAL CANCER
     Dosage: 428 MG, 1 IN 1 WK, INTRAVENOUS
     Route: 042
     Dates: start: 20090707, end: 20090908
  3. SODIUM CHLORIDE [Concomitant]
  4. MAGNESIUM SULFATE [Concomitant]

REACTIONS (5)
  - DRUG TOXICITY [None]
  - FATIGUE [None]
  - HYPOMAGNESAEMIA [None]
  - LETHARGY [None]
  - MUSCLE SPASMS [None]
